FAERS Safety Report 17141852 (Version 5)
Quarter: 2020Q2

REPORT INFORMATION
  Report Type: Report from Study
  Country: CA (occurrence: CA)
  Receive Date: 20191211
  Receipt Date: 20200623
  Transmission Date: 20200713
  Serious: Yes (Hospitalization, Other)
  Sender: FDA-Public Use
  Company Number: PHHY2014CA140784

PATIENT
  Age: 30 Year
  Sex: Male

DRUGS (6)
  1. SANDOSTATIN [Suspect]
     Active Substance: OCTREOTIDE ACETATE
     Indication: ACROMEGALY
     Dosage: 50 UG, QD
     Route: 058
     Dates: start: 20140908, end: 20140908
  2. SANDOSTATIN LAR DEPOT [Suspect]
     Active Substance: OCTREOTIDE ACETATE
     Dosage: 30 MG, QMO (ONCE A MONTH)
     Route: 030
     Dates: start: 20160711, end: 20161219
  3. SANDOSTATIN LAR DEPOT [Suspect]
     Active Substance: OCTREOTIDE ACETATE
     Indication: ACROMEGALY
     Dosage: 20 MG, QMO (ONCE A MONTH)
     Route: 030
     Dates: start: 20140924, end: 20160610
  4. SANDOSTATIN LAR DEPOT [Suspect]
     Active Substance: OCTREOTIDE ACETATE
     Dosage: 40 MG, QMO (EVERY 4 WEEKS)
     Route: 030
     Dates: start: 20170113
  5. CYMBALTA [Concomitant]
     Active Substance: DULOXETINE HYDROCHLORIDE
     Indication: PRODUCT USED FOR UNKNOWN INDICATION
     Dosage: 2 DF, QD
     Route: 048
  6. DOSTINEX [Concomitant]
     Active Substance: CABERGOLINE
     Indication: PRODUCT USED FOR UNKNOWN INDICATION
     Dosage: 1 DF, TIW
     Route: 048

REACTIONS (11)
  - Heart rate decreased [Recovering/Resolving]
  - Blood pressure systolic increased [Recovering/Resolving]
  - Contusion [Recovered/Resolved]
  - Procedural pain [Recovering/Resolving]
  - Blood pressure decreased [Recovering/Resolving]
  - Insulin-like growth factor increased [Unknown]
  - Body temperature decreased [Unknown]
  - Pain [Unknown]
  - Pain [Recovered/Resolved]
  - Hypothyroidism [Unknown]
  - Arthralgia [Unknown]

NARRATIVE: CASE EVENT DATE: 20141023
